FAERS Safety Report 9378519 (Version 2)
Quarter: 2013Q3

REPORT INFORMATION
  Report Type: Spontaneous
  Country: BR (occurrence: BR)
  Receive Date: 20130702
  Receipt Date: 20130725
  Transmission Date: 20140515
  Serious: Yes (Hospitalization, Other)
  Sender: FDA-Public Use
  Company Number: BR-ROCHE-1242166

PATIENT
  Age: 77 Year
  Sex: Female
  Weight: 64 kg

DRUGS (9)
  1. XOLAIR [Suspect]
     Indication: ASTHMA
     Dosage: 1 DF
     Route: 030
     Dates: start: 20120509
  2. FLUIR [Concomitant]
     Route: 065
  3. MOMETASONE FUROATE [Concomitant]
     Route: 065
  4. BUSONID [Concomitant]
  5. CALCIUM CARBONATE/CHOLECALCIFEROL [Concomitant]
     Route: 065
  6. DEPRESS [Concomitant]
  7. CORTISONE [Concomitant]
  8. DEPURA [Concomitant]
  9. SIMVASTATINA [Concomitant]
     Route: 065

REACTIONS (10)
  - Pneumonia [Recovered/Resolved]
  - Cataract [Recovered/Resolved]
  - Ocular hypertension [Recovered/Resolved]
  - Chest discomfort [Recovered/Resolved]
  - Dysphonia [Recovered/Resolved]
  - Nasal congestion [Recovered/Resolved]
  - Vocal cord disorder [Recovered/Resolved]
  - Weight decreased [Recovered/Resolved]
  - Tuberculosis [Unknown]
  - Incorrect route of drug administration [Unknown]
